FAERS Safety Report 5536369-4 (Version None)
Quarter: 2007Q4

REPORT INFORMATION
  Report Type: 
  Country: None (occurrence: None)
  Receive Date: 20071204
  Receipt Date: 20071121
  Transmission Date: 20080405
  Serious: Yes (Hospitalization)
  Sender: FDA-Public Use
  Company Number: 164592USA

PATIENT
  Sex: Female

DRUGS (2)
  1. PROGLYCEM CAPSULES DIAZOXIDE) [Suspect]
     Indication: HYPERINSULINAEMIA
     Dosage: DIVIDED TWICE A DAY (13 MG/KG)
  2. PROGLYCEM CAPSULES DIAZOXIDE) [Suspect]
     Indication: NEONATAL DISORDER
     Dosage: DIVIDED TWICE A DAY (13 MG/KG)

REACTIONS (18)
  - ATRIAL SEPTAL DEFECT [None]
  - DRUG TOXICITY [None]
  - ECHOCARDIOGRAM ABNORMAL [None]
  - GENERAL PHYSICAL HEALTH DETERIORATION [None]
  - HYPOXIA [None]
  - INTERCOSTAL RETRACTION [None]
  - LARYNGOMALACIA [None]
  - NO THERAPEUTIC RESPONSE [None]
  - OBSTRUCTIVE AIRWAYS DISORDER [None]
  - ORAL INTAKE REDUCED [None]
  - PULMONARY ARTERIOPATHY [None]
  - PULMONARY HYPERTENSION [None]
  - RESPIRATORY DISTRESS [None]
  - RESPIRATORY FAILURE [None]
  - RIGHT VENTRICULAR HYPERTROPHY [None]
  - TACHYCARDIA [None]
  - TACHYPNOEA [None]
  - VOMITING [None]
